FAERS Safety Report 15720930 (Version 2)
Quarter: 2018Q4

REPORT INFORMATION
  Report Type: Spontaneous
  Country: US (occurrence: US)
  Receive Date: 20181214
  Receipt Date: 20181219
  Transmission Date: 20190205
  Serious: Yes (Other)
  Sender: FDA-Public Use
  Company Number: US-AUROBINDO-AUR-APL-2018-059339

PATIENT
  Age: 25 Year
  Sex: Female

DRUGS (5)
  1. LINEZOLID. [Concomitant]
     Active Substance: LINEZOLID
     Indication: PULMONARY TUBERCULOSIS
     Dates: start: 201601, end: 201607
  2. CLOFAZIMINE [Concomitant]
     Active Substance: CLOFAZIMINE
     Indication: PULMONARY TUBERCULOSIS
     Dates: start: 201601, end: 201607
  3. MEROPENEM. [Suspect]
     Active Substance: MEROPENEM
     Indication: PULMONARY TUBERCULOSIS
     Dosage: 1.5 GRAM, EVERY 8HRS
     Route: 042
     Dates: start: 201601, end: 201607
  4. AMOXICILLIN+CLAVULANIC ACID 500/125MG [Suspect]
     Active Substance: AMOXICILLIN\CLAVULANIC ACID
     Indication: PULMONARY TUBERCULOSIS
     Dosage: 1 DOSAGE FORM, EVERY 8HRS
     Route: 048
     Dates: start: 201601, end: 201607
  5. BEDAQUILINE [Concomitant]
     Active Substance: BEDAQUILINE
     Indication: PULMONARY TUBERCULOSIS
     Dates: start: 201601, end: 201607

REACTIONS (1)
  - Fanconi syndrome acquired [Recovered/Resolved]

NARRATIVE: CASE EVENT DATE: 2016
